FAERS Safety Report 12083489 (Version 1)
Quarter: 2016Q1

REPORT INFORMATION
  Report Type: Spontaneous
  Country: US (occurrence: None)
  Receive Date: 20160216
  Receipt Date: 20160216
  Transmission Date: 20160526
  Serious: Yes (Disabling, Other)
  Sender: FDA-Public Use
  Company Number: None

PATIENT
  Age: 62 Year
  Sex: Female
  Weight: 56.7 kg

DRUGS (12)
  1. AROMASIN [Suspect]
     Active Substance: EXEMESTANE
     Indication: BREAST CANCER
     Route: 048
     Dates: start: 20150218, end: 20160212
  2. DIOVAN [Concomitant]
     Active Substance: VALSARTAN
  3. ARTIFICIAL TEARS: TEARS NATURALE FORTE [Concomitant]
  4. CITRACAL SLOW RELEASE + D3 [Concomitant]
  5. TIROSINT [Concomitant]
     Active Substance: LEVOTHYROXINE SODIUM
  6. VITAMIN C [Concomitant]
     Active Substance: ASCORBIC ACID
  7. SUNDOWN VIT. D3 [Concomitant]
  8. BIOTIN [Concomitant]
     Active Substance: BIOTIN
  9. ASPIRIN. [Concomitant]
     Active Substance: ASPIRIN
  10. SUNDOWN FISH OIL [Concomitant]
  11. CENTRUM SILVER MULTI-VITAMIN [Concomitant]
  12. YERBA PRIMA PSYLLIUM HUSK [Concomitant]

REACTIONS (17)
  - Pinguecula [None]
  - Condition aggravated [None]
  - Shoulder operation [None]
  - Hair growth abnormal [None]
  - Weight increased [None]
  - Onychoclasis [None]
  - Vertigo [None]
  - Trigger finger [None]
  - Injection site paraesthesia [None]
  - Sjogren^s syndrome [None]
  - Gastrooesophageal reflux disease [None]
  - Mixed connective tissue disease [None]
  - Feeling hot [None]
  - Photopsia [None]
  - CREST syndrome [None]
  - Hot flush [None]
  - Discomfort [None]

NARRATIVE: CASE EVENT DATE: 20160212
